FAERS Safety Report 7462628-4 (Version None)
Quarter: 2011Q2

REPORT INFORMATION
  Report Type: 
  Country: None (occurrence: None)
  Receive Date: 20110506
  Receipt Date: 20110426
  Transmission Date: 20111010
  Serious: Yes (Other)
  Sender: FDA-Public Use
  Company Number: PHHY2011US19003

PATIENT
  Sex: Female
  Weight: 16.9 kg

DRUGS (4)
  1. EXJADE [Suspect]
     Dosage: 375 MG, QD
     Route: 048
     Dates: start: 20070413, end: 20110131
  2. ACETAMINOPHEN [Concomitant]
  3. EXJADE [Suspect]
     Indication: IRON OVERLOAD
     Dosage: 250 MG, QD
     Route: 048
     Dates: start: 20101202, end: 20110403
  4. PREDNISONE [Concomitant]
     Indication: APLASIA PURE RED CELL
     Dosage: 35 MG
     Route: 048
     Dates: start: 20110403, end: 20110425

REACTIONS (4)
  - LIVER FUNCTION TEST ABNORMAL [None]
  - RENAL DISORDER [None]
  - ALANINE AMINOTRANSFERASE INCREASED [None]
  - PERICARDIAL CYST [None]
